FAERS Safety Report 5355391-4 (Version None)
Quarter: 2007Q2

REPORT INFORMATION
  Report Type: 
  Country: None (occurrence: None)
  Receive Date: 20070525
  Receipt Date: 20070326
  Transmission Date: 20071010
  Serious: Yes (Other)
  Sender: FDA-Public Use
  Company Number: WAES 0703USA04815

PATIENT

DRUGS (3)
  1. VYTORIN [Suspect]
     Indication: BLOOD CHOLESTEROL
  2. ZOCOR [Suspect]
     Indication: BLOOD CHOLESTEROL
  3. AMIODARONA [Concomitant]

REACTIONS (1)
  - RHABDOMYOLYSIS [None]
